FAERS Safety Report 9701002 (Version 2)
Quarter: 2014Q1

REPORT INFORMATION
  Report Type: Report from Study
  Country: DE (occurrence: DE)
  Receive Date: 20131121
  Receipt Date: 20140210
  Transmission Date: 20141002
  Serious: Yes (Hospitalization)
  Sender: FDA-Public Use
  Company Number: DE-ASTELLAS-2013US012074

PATIENT
  Age: 8 Year
  Sex: Female

DRUGS (1)
  1. TACROLIMUS OINTMENT [Suspect]
     Indication: DERMATITIS ATOPIC
     Dosage: 0.03 %, UNKNOWN/D
     Route: 061
     Dates: start: 200908

REACTIONS (1)
  - Tonsillectomy [Recovered/Resolved]
